FAERS Safety Report 24106094 (Version 1)
Quarter: 2024Q3

REPORT INFORMATION
  Report Type: Report from Study
  Country: US (occurrence: US)
  Receive Date: 20240717
  Receipt Date: 20240717
  Transmission Date: 20241017
  Serious: Yes (Hospitalization)
  Sender: AEGERION
  Company Number: US-AMRYT PHARMACEUTICALS DAC-AEGR007250

PATIENT
  Sex: Female

DRUGS (1)
  1. OCTREOTIDE [Suspect]
     Active Substance: OCTREOTIDE\OCTREOTIDE ACETATE
     Indication: Lymphangiopathy
     Dosage: TAKE 1 CAPSUL BY MOUTH TWICE DAILY
     Route: 048

REACTIONS (2)
  - Lymphorrhoea [Unknown]
  - Off label use [Unknown]
